FAERS Safety Report 5853390-7 (Version None)
Quarter: 2008Q3

REPORT INFORMATION
  Report Type: 
  Country: None (occurrence: None)
  Receive Date: 20080821
  Receipt Date: 20080809
  Transmission Date: 20090109
  Serious: Yes (Hospitalization, Other)
  Sender: FDA-Public Use
  Company Number: US-PFIZER INC-2008066464

PATIENT
  Age: 64 Year
  Sex: Male
  Weight: 83 kg

DRUGS (1)
  1. SUTENT [Suspect]
     Indication: NON-SMALL CELL LUNG CANCER
     Route: 048

REACTIONS (5)
  - ANAL INFLAMMATION [None]
  - CLOSTRIDIUM DIFFICILE COLITIS [None]
  - HYPONATRAEMIA [None]
  - HYPOTENSION [None]
  - PNEUMONIA [None]
